FAERS Safety Report 8582011-8 (Version None)
Quarter: 2012Q3

REPORT INFORMATION
  Report Type: 
  Country: None (occurrence: None)
  Receive Date: 20120809
  Receipt Date: 20120802
  Transmission Date: 20120928
  Serious: Yes (Other)
  Sender: FDA-Public Use
  Company Number: US-INCYTE CORPORATION-2012IN001203

PATIENT
  Sex: Male
  Weight: 76.19 kg

DRUGS (6)
  1. VICODIN [Concomitant]
  2. TRAMADOL HCL [Concomitant]
  3. JAKAFI [Suspect]
     Indication: MYELOFIBROSIS
     Dosage: 15 MG, BID
     Route: 048
     Dates: start: 20120117, end: 20120714
  4. JAKAFI [Suspect]
     Dosage: 10 MG, BID
     Dates: start: 20120715
  5. METHADONE HCL [Concomitant]
  6. REQUIP [Concomitant]

REACTIONS (7)
  - ANAEMIA [None]
  - THROMBOCYTOPENIA [None]
  - NEUROPATHY PERIPHERAL [None]
  - DECREASED APPETITE [None]
  - WEIGHT DECREASED [None]
  - BLOOD IRON INCREASED [None]
  - FALL [None]
